FAERS Safety Report 18346562 (Version 2)
Quarter: 2022Q3

REPORT INFORMATION
  Report Type: Spontaneous
  Country: US (occurrence: US)
  Receive Date: 20201006
  Receipt Date: 20220719
  Transmission Date: 20221027
  Serious: Yes (Other)
  Sender: FDA-Public Use
  Company Number: US-SAARTEMIS-SAC202009300382

PATIENT
  Age: 50 Year
  Sex: Female

DRUGS (1)
  1. ZANTAC [Suspect]
     Active Substance: RANITIDINE HYDROCHLORIDE
     Indication: Dyspepsia
     Dosage: 150 MG
     Route: 065
     Dates: start: 201501, end: 201901

REACTIONS (1)
  - Colorectal cancer stage III [Not Recovered/Not Resolved]

NARRATIVE: CASE EVENT DATE: 20171213
